FAERS Safety Report 25345303 (Version 1)
Quarter: 2025Q2

REPORT INFORMATION
  Report Type: Report from Study
  Country: US (occurrence: US)
  Receive Date: 20250522
  Receipt Date: 20250522
  Transmission Date: 20250716
  Serious: Yes (Death, Other)
  Sender: ACADIA PHARMACEUTICALS
  Company Number: US-ACADIA PHARMACEUTICALS INC.-ACA-2025-PIM-006033

PATIENT
  Age: 74 Year
  Sex: Male

DRUGS (20)
  1. NUPLAZID [Suspect]
     Active Substance: PIMAVANSERIN TARTRATE
     Indication: Psychotic disorder due to a general medical condition
     Dosage: 34 MILLIGRAM, QD
     Route: 048
     Dates: start: 20240216, end: 20250430
  2. NUPLAZID [Suspect]
     Active Substance: PIMAVANSERIN TARTRATE
     Indication: Hallucination
  3. CARBIDOPA\LEVODOPA [Concomitant]
     Active Substance: CARBIDOPA\LEVODOPA
  4. GABAPENTIN [Concomitant]
     Active Substance: GABAPENTIN
  5. TYLENOL [Concomitant]
     Active Substance: ACETAMINOPHEN
  6. MIRALAX [Concomitant]
     Active Substance: POLYETHYLENE GLYCOL 3350
  7. MIDODRINE [Concomitant]
     Active Substance: MIDODRINE
  8. NAPROXEN [Concomitant]
     Active Substance: NAPROXEN
  9. MIDODRINE [Concomitant]
     Active Substance: MIDODRINE
  10. OMEPRAZOLE [Concomitant]
     Active Substance: OMEPRAZOLE
  11. SEROQUEL [Concomitant]
     Active Substance: QUETIAPINE FUMARATE
  12. VITAMIN D3 [Concomitant]
     Active Substance: CHOLECALCIFEROL
  13. MEMANTINE [Concomitant]
     Active Substance: MEMANTINE
  14. AMOXICILLIN [Concomitant]
     Active Substance: AMOXICILLIN
  15. MORPHINE SULFATE [Concomitant]
     Active Substance: MORPHINE SULFATE
  16. SENNA LAXATIVE [Concomitant]
     Active Substance: SENNOSIDES
  17. GLYCATE [Concomitant]
     Active Substance: GLYCOPYRROLATE
  18. ZOFRAN [Concomitant]
     Active Substance: ONDANSETRON HYDROCHLORIDE
  19. LORAZEPAM [Concomitant]
     Active Substance: LORAZEPAM
  20. LASIX [Concomitant]
     Active Substance: FUROSEMIDE

REACTIONS (1)
  - Death [Fatal]

NARRATIVE: CASE EVENT DATE: 20250430
